FAERS Safety Report 18838671 (Version 1)
Quarter: 2021Q1

REPORT INFORMATION
  Report Type: Spontaneous
  Country: FR (occurrence: FR)
  Receive Date: 20210203
  Receipt Date: 20210203
  Transmission Date: 20210419
  Serious: Yes (Other)
  Sender: FDA-Public Use
  Company Number: FR-VIIV HEALTHCARE LIMITED-FR2021020111

PATIENT
  Age: 15 Day
  Sex: Female
  Weight: 4.19 kg

DRUGS (5)
  1. FERROSTRANE [Concomitant]
     Active Substance: SODIUM FEREDETATE
     Indication: PRODUCT USED FOR UNKNOWN INDICATION
     Dosage: 4 ML, QD
     Route: 065
  2. EPIVIR [Suspect]
     Active Substance: LAMIVUDINE
     Indication: PROPHYLAXIS AGAINST HIV INFECTION
     Dosage: 0.9 ML, BID
     Route: 048
     Dates: start: 20201006, end: 20201103
  3. ISENTRESS [Suspect]
     Active Substance: RALTEGRAVIR POTASSIUM
     Indication: PROPHYLAXIS AGAINST HIV INFECTION
     Dosage: 0.7 ML, QD (0.7ML / DAY FOR 7 DAYS THEN 1.5ML X2 / DAY FOR 3 WEEKS)
     Route: 048
     Dates: start: 20201006, end: 20201103
  4. RETROVIR [Suspect]
     Active Substance: ZIDOVUDINE
     Indication: PROPHYLAXIS AGAINST HIV INFECTION
     Dosage: 0.9 ML, BID (0.9ML / 12H FOR TWO WEEKS THEN 1.8ML / 12H)
     Route: 048
     Dates: start: 20201006, end: 20201026
  5. SPECIAFOLDINE [Concomitant]
     Active Substance: FOLIC ACID
     Indication: PRODUCT USED FOR UNKNOWN INDICATION
     Dosage: 2.5 MG, QD
     Route: 065

REACTIONS (4)
  - Anaemia [Recovered/Resolved]
  - Neutropenia [Recovered/Resolved]
  - Hepatocellular injury [Unknown]
  - Tremor [Recovered/Resolved]

NARRATIVE: CASE EVENT DATE: 20201021
